FAERS Safety Report 17995017 (Version 1)
Quarter: 2020Q3

REPORT INFORMATION
  Report Type: Report from Study
  Country: CA (occurrence: CA)
  Receive Date: 20200708
  Receipt Date: 20200708
  Transmission Date: 20201103
  Serious: Yes (Other)
  Sender: FDA-Public Use
  Company Number: CA-ROCHE-2599973

PATIENT
  Sex: Female

DRUGS (1)
  1. OCREVUS [Suspect]
     Active Substance: OCRELIZUMAB
     Indication: PRIMARY PROGRESSIVE MULTIPLE SCLEROSIS
     Dosage: 300 MG ON DAY 0, ON DAY 14 AND THEN 600 MG ONCE IN SIX MONTH
     Route: 042
     Dates: start: 20180528

REACTIONS (2)
  - Pneumonia [Recovered/Resolved]
  - Neutrophil count abnormal [Not Recovered/Not Resolved]
